FAERS Safety Report 12247040 (Version 2)
Quarter: 2016Q3

REPORT INFORMATION
  Report Type: Spontaneous
  Country: US (occurrence: US)
  Receive Date: 20160407
  Receipt Date: 20160824
  Transmission Date: 20161109
  Serious: Yes (Death, Hospitalization)
  Sender: FDA-Public Use
  Company Number: US-HLSUS-2016-US-000200

PATIENT
  Age: 48 Year
  Sex: Female

DRUGS (1)
  1. CLOZARIL [Suspect]
     Active Substance: CLOZAPINE
     Indication: SCHIZOPHRENIA
     Dosage: 450 MG AT BEDTIME
     Route: 048
     Dates: end: 2016

REACTIONS (10)
  - Pneumonia aspiration [Unknown]
  - Clostridium difficile colitis [Unknown]
  - Lacunar infarction [None]
  - Lung consolidation [None]
  - Acute respiratory failure [Unknown]
  - Septic shock [Unknown]
  - Atelectasis [None]
  - Death [Fatal]
  - Pleural effusion [None]
  - Mental impairment [Unknown]

NARRATIVE: CASE EVENT DATE: 20160330
